FAERS Safety Report 16402920 (Version 1)
Quarter: 2019Q2

REPORT INFORMATION
  Report Type: Spontaneous
  Country: US (occurrence: US)
  Receive Date: 20190501
  Receipt Date: 20190501
  Transmission Date: 20190711
  Serious: Yes (Other)
  Sender: FDA-Public Use
  Company Number: None

PATIENT
  Age: 80 Year
  Sex: Male
  Weight: 70.76 kg

DRUGS (1)
  1. LEVAQUIN [Suspect]
     Active Substance: LEVOFLOXACIN
     Indication: BRONCHITIS
     Route: 048
     Dates: start: 20180102, end: 20180107

REACTIONS (5)
  - Herpes zoster [None]
  - Deafness [None]
  - Tendon pain [None]
  - Gait disturbance [None]
  - Cochlea implant [None]

NARRATIVE: CASE EVENT DATE: 20180105
